FAERS Safety Report 23141700 (Version 2)
Quarter: 2023Q4

REPORT INFORMATION
  Report Type: Report from Study
  Country: TR (occurrence: TR)
  Receive Date: 20231103
  Receipt Date: 20231127
  Transmission Date: 20240110
  Serious: Yes (Hospitalization)
  Sender: FDA-Public Use
  Company Number: TR-ABBVIE-5477002

PATIENT
  Sex: Female
  Weight: 76 kg

DRUGS (4)
  1. CARBIDOPA\LEVODOPA [Suspect]
     Active Substance: CARBIDOPA\LEVODOPA
     Indication: Parkinson^s disease
     Dosage: MORNING DOSE (ML): 5.80 CONTINUOUS DOSE (ML): 2.40 EXTRA DOSE (ML): 0.50
     Route: 050
     Dates: start: 20231031
  2. CARBIDOPA\LEVODOPA [Suspect]
     Active Substance: CARBIDOPA\LEVODOPA
     Dosage: MORNING DOSE (ML): 3.80 CONTINUOUS DOSE (ML): 1.50 EXTRA DOSE (ML): 0.50
     Route: 050
     Dates: start: 20180528, end: 20231030
  3. LANSOPRAZOLE [Concomitant]
     Active Substance: LANSOPRAZOLE
     Indication: Gastrointestinal disorder prophylaxis
     Dosage: FORM STRENGTH: 30 MILLIGRAM
  4. AMANTADINE SULFATE [Concomitant]
     Active Substance: AMANTADINE SULFATE
     Indication: Parkinson^s disease
     Dosage: FORM STRENGTH: 100 MILLIGRAM, DOSAGE 200 MG

REACTIONS (2)
  - Tremor [Recovered/Resolved]
  - Stoma site erythema [Recovered/Resolved]
